FAERS Safety Report 16923176 (Version 1)
Quarter: 2019Q4

REPORT INFORMATION
  Report Type: Report from Study
  Country: RU (occurrence: RU)
  Receive Date: 20191016
  Receipt Date: 20191016
  Transmission Date: 20200122
  Serious: Yes (Other)
  Sender: FDA-Public Use
  Company Number: RU-ASTRAZENECA-2019SF44872

PATIENT
  Age: 57 Year
  Sex: Male
  Weight: 77 kg

DRUGS (2)
  1. BRILINTA [Suspect]
     Active Substance: TICAGRELOR
     Indication: STENT PLACEMENT
     Route: 048
     Dates: start: 20181122
  2. BRILINTA [Suspect]
     Active Substance: TICAGRELOR
     Indication: ANGINA UNSTABLE
     Route: 048
     Dates: start: 20181122

REACTIONS (5)
  - Tinnitus [Not Recovered/Not Resolved]
  - Epistaxis [Recovered/Resolved]
  - Intentional product misuse [Recovered/Resolved]
  - Asphyxia [Not Recovered/Not Resolved]
  - Contusion [Not Recovered/Not Resolved]
